FAERS Safety Report 12436337 (Version 5)
Quarter: 2016Q3

REPORT INFORMATION
  Report Type: Report from Study
  Country: US (occurrence: US)
  Receive Date: 20160605
  Receipt Date: 20160913
  Transmission Date: 20161109
  Serious: Yes (Death, Other)
  Sender: FDA-Public Use
  Company Number: US-009507513-1605USA008743

PATIENT
  Sex: Male

DRUGS (1)
  1. KEYTRUDA [Suspect]
     Active Substance: PEMBROLIZUMAB
     Indication: HEPATIC CANCER
     Dosage: UNK
     Route: 042

REACTIONS (4)
  - Circumstance or information capable of leading to medication error [Unknown]
  - Product use issue [Unknown]
  - Malignant neoplasm progression [Fatal]
  - Drug dose omission [Unknown]
